FAERS Safety Report 9190373 (Version 1)
Quarter: 2013Q1

REPORT INFORMATION
  Report Type: Spontaneous
  Country: US (occurrence: US)
  Receive Date: 20130326
  Receipt Date: 20130326
  Transmission Date: 20140127
  Serious: Yes (Hospitalization)
  Sender: FDA-Public Use
  Company Number: US-BAYER-2013-035857

PATIENT
  Age: 36 Year
  Sex: Female
  Weight: 68 kg

DRUGS (5)
  1. YASMIN [Suspect]
  2. DEMEROL [Concomitant]
  3. VALIUM [Concomitant]
  4. PERCOCET [Concomitant]
  5. PHENERGAN [Concomitant]

REACTIONS (2)
  - Pulmonary embolism [None]
  - Deep vein thrombosis [None]
